FAERS Safety Report 13411275 (Version 4)
Quarter: 2022Q4

REPORT INFORMATION
  Report Type: Spontaneous
  Country: US (occurrence: US)
  Receive Date: 20170406
  Receipt Date: 20221123
  Transmission Date: 20230112
  Serious: No
  Sender: FDA-Public Use
  Company Number: US-JNJFOC-20170307030

PATIENT
  Age: 11 Year
  Sex: Male

DRUGS (7)
  1. RISPERDAL [Suspect]
     Active Substance: RISPERIDONE
     Indication: Attention deficit hyperactivity disorder
     Route: 048
     Dates: start: 20070817
  2. RISPERDAL [Suspect]
     Active Substance: RISPERIDONE
     Indication: Oppositional defiant disorder
     Route: 048
     Dates: start: 20080103
  3. RISPERDAL [Suspect]
     Active Substance: RISPERIDONE
     Route: 048
     Dates: start: 20090129
  4. RISPERDAL [Suspect]
     Active Substance: RISPERIDONE
     Route: 048
     Dates: start: 20110701, end: 20110916
  5. RISPERDAL [Suspect]
     Active Substance: RISPERIDONE
     Route: 048
     Dates: start: 20111013
  6. RISPERIDONE [Suspect]
     Active Substance: RISPERIDONE
     Indication: Attention deficit hyperactivity disorder
     Route: 048
     Dates: start: 20110701, end: 20110916
  7. RISPERIDONE [Suspect]
     Active Substance: RISPERIDONE
     Indication: Oppositional defiant disorder

REACTIONS (6)
  - Gynaecomastia [Unknown]
  - Emotional distress [Unknown]
  - Treatment noncompliance [Unknown]
  - Somnolence [Unknown]
  - Off label use [Unknown]
  - Product use in unapproved indication [Unknown]

NARRATIVE: CASE EVENT DATE: 20070817
